FAERS Safety Report 5849072-8 (Version None)
Quarter: 2008Q3

REPORT INFORMATION
  Report Type: 
  Country: None (occurrence: None)
  Receive Date: 20080819
  Receipt Date: 20080811
  Transmission Date: 20090109
  Serious: Yes (Hospitalization)
  Sender: FDA-Public Use
  Company Number: PHHY2008FR18111

PATIENT
  Sex: Female

DRUGS (8)
  1. TEGRETOL [Interacting]
     Indication: EPILEPSY
     Dosage: 400 MG, BID
     Route: 048
  2. TEGRETOL [Interacting]
     Dosage: 400 MG, QD
  3. PROPOXYPHENE HCL AND ACETAMINOPHEN [Suspect]
     Dosage: 6 DAILY
     Route: 048
     Dates: start: 20080612, end: 20080616
  4. DOLIPRANE [Concomitant]
     Dosage: 1-4 TABLET DAILY
     Route: 048
     Dates: start: 20080612, end: 20080616
  5. IMODIUM [Concomitant]
     Dosage: UNK
     Route: 048
     Dates: start: 20080612, end: 20080616
  6. ALEPSAL [Concomitant]
  7. TOPIRAMATE [Concomitant]
  8. RIVOTRIL [Concomitant]

REACTIONS (4)
  - DRUG INTERACTION [None]
  - DRUG LEVEL ABOVE THERAPEUTIC [None]
  - OVERDOSE [None]
  - PSYCHOMOTOR SKILLS IMPAIRED [None]
